FAERS Safety Report 8383352-X (Version None)
Quarter: 2012Q2

REPORT INFORMATION
  Report Type: 
  Country: None (occurrence: None)
  Receive Date: 20120524
  Receipt Date: 20120511
  Transmission Date: 20120825
  Serious: Yes (Other)
  Sender: FDA-Public Use
  Company Number: DE-JNJFOC-20120512180

PATIENT
  Age: 47 Year
  Sex: Male

DRUGS (1)
  1. VERMOX [Suspect]
     Indication: HELMINTHIC INFECTION
     Route: 048
     Dates: start: 20080101

REACTIONS (1)
  - GLOMERULONEPHRITIS MEMBRANOUS [None]
